FAERS Safety Report 11681934 (Version 2)
Quarter: 2015Q4

REPORT INFORMATION
  Report Type: Spontaneous
  Country: CN (occurrence: CN)
  Receive Date: 20151029
  Receipt Date: 20151208
  Transmission Date: 20160304
  Serious: Yes (Hospitalization)
  Sender: FDA-Public Use
  Company Number: PHHY2015CN138608

PATIENT
  Age: 82 Year
  Sex: Male

DRUGS (1)
  1. TEGRETAL [Suspect]
     Active Substance: CARBAMAZEPINE
     Indication: PRODUCT USED FOR UNKNOWN INDICATION
     Dosage: 100 MG, TID
     Route: 048
     Dates: start: 20150819, end: 20150901

REACTIONS (21)
  - Blood test abnormal [Recovered/Resolved]
  - White blood cell count decreased [Unknown]
  - Thrombocytopenia [Unknown]
  - Flushing [Unknown]
  - Lymphocyte count decreased [Unknown]
  - Blood bilirubin increased [Unknown]
  - Blood sodium decreased [Unknown]
  - Dermatitis exfoliative [Unknown]
  - Skin exfoliation [Unknown]
  - Blood potassium decreased [Unknown]
  - Haemoglobin decreased [Unknown]
  - Platelet count decreased [Unknown]
  - Pyrexia [Unknown]
  - Abdominal discomfort [Unknown]
  - Red blood cell count decreased [Unknown]
  - Drug-induced liver injury [Unknown]
  - Liver function test abnormal [Recovered/Resolved]
  - Monocyte percentage increased [Unknown]
  - Amylase increased [Unknown]
  - Rash [Recovered/Resolved]
  - Chronic gastritis [Unknown]

NARRATIVE: CASE EVENT DATE: 20150830
